FAERS Safety Report 5730206-0 (Version None)
Quarter: 2008Q2

REPORT INFORMATION
  Report Type: 
  Country: None (occurrence: None)
  Receive Date: 20080505
  Receipt Date: 20080505
  Transmission Date: 20081010
  Serious: Yes (Hospitalization)
  Sender: FDA-Public Use
  Company Number: None

PATIENT
  Sex: Male
  Weight: 55.5 kg

DRUGS (3)
  1. CYTARABINE [Suspect]
     Dosage: 29280 MG
     Dates: end: 20080413
  2. ETOPOSIDE [Suspect]
     Dosage: 2768 MG
     Dates: end: 20080412
  3. RITUXIMAB (MOAB C2B8 ANTI CD20, CHIMERIC) [Suspect]
     Dosage: 1380 MG
     Dates: end: 20080420

REACTIONS (5)
  - DEHYDRATION [None]
  - MUCOSAL INFLAMMATION [None]
  - NAUSEA [None]
  - VOMITING [None]
  - WEIGHT DECREASED [None]
